FAERS Safety Report 19289557 (Version 3)
Quarter: 2021Q3

REPORT INFORMATION
  Report Type: Spontaneous
  Country: LT (occurrence: LT)
  Receive Date: 20210521
  Receipt Date: 20210708
  Transmission Date: 20211014
  Serious: Yes (Hospitalization, Other)
  Sender: FDA-Public Use
  Company Number: LT-REGENERON PHARMACEUTICALS, INC.-2021-52670

PATIENT

DRUGS (1)
  1. LIBTAYO [Suspect]
     Active Substance: CEMIPLIMAB-RWLC
     Indication: SQUAMOUS CELL CARCINOMA
     Dosage: UNK
     Dates: start: 20210420, end: 20210420

REACTIONS (5)
  - Myocardial infarction [Recovered/Resolved]
  - Coronary artery stenosis [Unknown]
  - Hepatic enzyme increased [Recovered/Resolved]
  - Coronary artery dilatation [Unknown]
  - Angina pectoris [Unknown]
